FAERS Safety Report 5640236-5 (Version None)
Quarter: 2008Q1

REPORT INFORMATION
  Report Type: 
  Country: None (occurrence: None)
  Receive Date: 20080227
  Receipt Date: 20080208
  Transmission Date: 20080703
  Serious: Yes (Hospitalization)
  Sender: FDA-Public Use
  Company Number: US-BAXTER-2008BH001197

PATIENT
  Age: 59 Year
  Sex: Female
  Weight: 71 kg

DRUGS (9)
  1. HEPARIN SODIUM [Suspect]
     Indication: PROPHYLAXIS
     Route: 033
     Dates: end: 20080101
  2. HEPARIN SODIUM [Suspect]
     Route: 033
     Dates: start: 20080101
  3. METOPROLOL TARTRATE [Concomitant]
     Indication: HYPERTENSION
     Route: 048
  4. PRILOSEC [Concomitant]
     Indication: DRUG USE FOR UNKNOWN INDICATION
     Route: 048
  5. AMLODIPINE [Concomitant]
     Indication: HYPERTENSION
     Route: 048
  6. DIANEAL [Concomitant]
     Indication: RENAL FAILURE CHRONIC
     Dosage: DOSE UNIT:UNKNOWN
     Route: 033
  7. NEORAL [Concomitant]
     Indication: RENAL FAILURE CHRONIC
     Route: 048
  8. RENAGEL [Concomitant]
     Indication: RENAL FAILURE CHRONIC
     Route: 048
  9. ATARAX [Concomitant]
     Indication: PRURITUS
     Dosage: DOSE UNIT:UNKNOWN
     Route: 048

REACTIONS (2)
  - PERITONITIS [None]
  - VOMITING [None]
